FAERS Safety Report 16298198 (Version 3)
Quarter: 2019Q2

REPORT INFORMATION
  Report Type: Report from Study
  Country: ZA (occurrence: ZA)
  Receive Date: 20190510
  Receipt Date: 20190520
  Transmission Date: 20190711
  Serious: Yes (Life-Threatening)
  Sender: FDA-Public Use
  Company Number: ZA-SA-2019SA056138

PATIENT
  Age: 46 Year
  Sex: Male

DRUGS (13)
  1. KEYSAL [Concomitant]
     Dosage: 10 UNK, QD
     Dates: start: 20190228
  2. INSULIN GLULISINE [Suspect]
     Active Substance: INSULIN GLULISINE
     Indication: TYPE 2 DIABETES MELLITUS
     Dosage: UNK UNK, UNK
  3. TOUJEO [Suspect]
     Active Substance: INSULIN GLARGINE
     Indication: TYPE 2 DIABETES MELLITUS
     Dosage: BED TIME- 30 U, HS
     Dates: start: 20190201
  4. METFORMIN [Concomitant]
     Active Substance: METFORMIN HYDROCHLORIDE
     Dosage: BEFORE SUPPER- 1000 MG, BEFORE BREAK FAST- 1000 MG, BID
     Dates: start: 20150201
  5. A LENNON VITAMIN B COMPLEX [Concomitant]
     Dosage: 14D-10 ML
     Dates: start: 20190228
  6. OPTISULIN (INSULIN GLARGINE) [Suspect]
     Active Substance: INSULIN GLARGINE
     Indication: TYPE 2 DIABETES MELLITUS
     Dosage: 30 U, HS
     Dates: start: 20190221
  7. DIAGLUCIDE [Concomitant]
     Active Substance: GLICLAZIDE
     Dosage: BEFORE SUPPER- 60 MG, BEFORE BREAKFAST- 60 MG, BID
     Dates: start: 20190201
  8. ATORVASTATIN UNICORN [Concomitant]
     Active Substance: ATORVASTATIN
     Dosage: 10 MG, HS
     Dates: start: 20190228
  9. ECOTRIN [Concomitant]
     Active Substance: ASPIRIN
     Dosage: 81 MG, QD
     Dates: start: 20190228
  10. INSULIN GLARGINE [Suspect]
     Active Substance: INSULIN GLARGINE
     Indication: TYPE 2 DIABETES MELLITUS
     Dosage: UNK UNK, UNK
  11. MENGEN [Concomitant]
     Active Substance: METFORMIN HYDROCHLORIDE
     Dosage: BEFORE SUPPER- 1000 MG, BEFORE BREAK FAST- 1000 MG, BID
     Dates: start: 20150201
  12. LISINOPRIL. [Concomitant]
     Active Substance: LISINOPRIL
     Dosage: (BEFORE BREAKFAST)20 MG, QD
     Dates: start: 20190228
  13. HUMALOG [Concomitant]
     Active Substance: INSULIN LISPRO
     Dosage: 20 U, TID
     Dates: start: 20190228

REACTIONS (7)
  - Rash generalised [Not Recovered/Not Resolved]
  - Burning sensation [Not Recovered/Not Resolved]
  - Injection site rash [Recovered/Resolved]
  - Blood glucose increased [Not Recovered/Not Resolved]
  - Glycosylated haemoglobin increased [Unknown]
  - Pruritus [Not Recovered/Not Resolved]
  - Drug ineffective [Unknown]

NARRATIVE: CASE EVENT DATE: 20190201
